FAERS Safety Report 5152140-X (Version None)
Quarter: 2006Q4

REPORT INFORMATION
  Report Type: 
  Country: None (occurrence: None)
  Receive Date: 20061116
  Receipt Date: 20030801
  Transmission Date: 20070319
  Serious: Yes (Other)
  Sender: FDA-Public Use
  Company Number: CN-BRISTOL-MYERS SQUIBB COMPANY-13578380

PATIENT
  Age: 14 Year
  Sex: Male
  Weight: 34 kg

DRUGS (1)
  1. VELOSEF [Suspect]
     Indication: RHINITIS
     Route: 042
     Dates: start: 20030727, end: 20030727

REACTIONS (1)
  - HAEMATURIA [None]
